FAERS Safety Report 7023666-9 (Version None)
Quarter: 2010Q3

REPORT INFORMATION
  Report Type: 
  Country: None (occurrence: None)
  Receive Date: 20100929
  Receipt Date: 20100929
  Transmission Date: 20110219
  Serious: Yes (Hospitalization)
  Sender: FDA-Public Use
  Company Number: None

PATIENT
  Sex: Female
  Weight: 105 kg

DRUGS (1)
  1. ELOXATIN [Suspect]
     Dosage: 184 MG
     Dates: end: 20100915

REACTIONS (7)
  - ABDOMINAL HERNIA [None]
  - ANORECTAL DISORDER [None]
  - HAEMATEMESIS [None]
  - HAEMATOCHEZIA [None]
  - HIATUS HERNIA [None]
  - NEPHROLITHIASIS [None]
  - NEUTROPENIA [None]
